FAERS Safety Report 6938963-2 (Version None)
Quarter: 2010Q3

REPORT INFORMATION
  Report Type: 
  Country: None (occurrence: None)
  Receive Date: 20100824
  Receipt Date: 20100814
  Transmission Date: 20110219
  Serious: Yes (Other)
  Sender: FDA-Public Use
  Company Number: GXKR2010GB09125

PATIENT
  Age: 17 Year
  Sex: Female
  Weight: 59 kg

DRUGS (8)
  1. AMOXICILLIN [Suspect]
     Indication: URINARY TRACT INFECTION
     Dosage: 500 MG, TID
     Route: 048
     Dates: start: 20091222
  2. DIAZEPAM (NGX) [Suspect]
     Indication: SEDATION
     Dosage: 2 MG, TID
     Route: 048
     Dates: start: 20091013, end: 20091016
  3. HUMAN PAPILLOMA VIRUS VACCINE [Suspect]
     Indication: PROPHYLAXIS
     Dosage: 1 DF, ONCE/SINGLE
     Route: 030
     Dates: start: 20091101, end: 20091101
  4. CLOTRIMAZOLE [Suspect]
     Indication: CANDIDIASIS
     Dosage: UNK
     Route: 065
     Dates: start: 20091215
  5. BECLOMETASONE DIPROPIONATE [Concomitant]
     Indication: ASTHMA
     Dosage: 250 UG, BID
     Dates: start: 20070101
  6. FOLIC ACID [Concomitant]
     Indication: PREGNANCY
     Dosage: 400 UG, BID
     Route: 048
     Dates: start: 20091211
  7. NORDETTE-28 [Concomitant]
     Indication: CONTRACEPTION
     Dosage: UNK
     Route: 048
     Dates: start: 20080101
  8. ALBUTEROL SULFATE AUTOHALER [Concomitant]
     Indication: ASTHMA
     Dosage: UNK
     Dates: start: 20060101

REACTIONS (2)
  - ABORTION SPONTANEOUS [None]
  - DRUG EXPOSURE DURING PREGNANCY [None]
